FAERS Safety Report 8521370-9 (Version None)
Quarter: 2012Q3

REPORT INFORMATION
  Report Type: 
  Country: None (occurrence: None)
  Receive Date: 20120719
  Receipt Date: 20120716
  Transmission Date: 20120928
  Serious: Yes (Life-Threatening, Other)
  Sender: FDA-Public Use
  Company Number: PT-ROXANE LABORATORIES, INC.-2012-RO-01560RO

PATIENT
  Age: 37 Year
  Sex: Female

DRUGS (6)
  1. VALPROATE SODIUM [Suspect]
     Dosage: 1000 MG
  2. BIPERIDEN HYDROCHLORIDE TAB [Suspect]
     Indication: AKATHISIA
     Dosage: 8 MG
  3. RISPERIDONE [Suspect]
     Indication: BIPOLAR I DISORDER
     Dosage: 3 MG
  4. LORAZEPAM [Suspect]
     Dosage: 1 MG
  5. VALPROATE SODIUM [Suspect]
     Indication: BIPOLAR I DISORDER
     Dosage: 500 MG
  6. TRAZODONE HYDROCHLORIDE [Suspect]
     Indication: INSOMNIA
     Dosage: 100 MG

REACTIONS (2)
  - HYPERAMMONAEMIC ENCEPHALOPATHY [None]
  - AMNESIA [None]
